FAERS Safety Report 9529639 (Version 1)
Quarter: 2013Q3

REPORT INFORMATION
  Report Type: Spontaneous
  Country: DE (occurrence: DE)
  Receive Date: 20130917
  Receipt Date: 20130917
  Transmission Date: 20140515
  Serious: Yes (Hospitalization, Other)
  Sender: FDA-Public Use
  Company Number: DE-ELI_LILLY_AND_COMPANY-DE201309001389

PATIENT
  Age: 40 Year
  Sex: Female

DRUGS (13)
  1. HUMAN INSULIN (RDNA ORIGIN) NPH [Suspect]
     Dosage: UNK
     Dates: start: 2009
  2. HUMAN INSULIN (RDNA ORIGIN) NPH [Suspect]
     Dosage: UNK
     Dates: start: 2011
  3. HUMALOG LISPRO [Suspect]
     Indication: TYPE 2 DIABETES MELLITUS
     Dosage: 30 IU, TID
     Route: 058
     Dates: start: 201203
  4. VICTOZA [Concomitant]
     Dosage: UNK
     Dates: start: 201203
  5. GABAPENTIN ^PARKE-DAVIS^ [Concomitant]
     Dosage: 500 MG, BID
  6. AZATIOPRIN [Concomitant]
     Dosage: 100 MG, BID
  7. IBUPROFEN [Concomitant]
     Dosage: 800 MG, BID
  8. TILIDIN [Concomitant]
     Dosage: UNK, BID
  9. SPIRONOLACTON [Concomitant]
  10. METFORMIN [Concomitant]
     Dosage: 850 MG, UNK
  11. MAGNESIUM [Concomitant]
     Dosage: 400 MG, UNK
  12. VITAMIN B [Concomitant]
  13. L-THYROXINE [Concomitant]
     Dosage: 175 MG, UNK

REACTIONS (20)
  - Uterine contractions abnormal [Recovered/Resolved]
  - Thyroid cancer [Recovered/Resolved]
  - Weight decreased [Unknown]
  - Localised infection [Unknown]
  - Muscle spasms [Unknown]
  - Induced labour [Recovered/Resolved]
  - Blood glucose increased [Unknown]
  - Blood cholesterol increased [Unknown]
  - Laboratory test abnormal [Unknown]
  - Diarrhoea [Unknown]
  - Dysarthria [Unknown]
  - Blood glucose increased [Unknown]
  - Muscle spasms [Recovered/Resolved]
  - Pain [Recovered/Resolved]
  - Mobility decreased [Recovered/Resolved]
  - Muscle spasms [Unknown]
  - Glycosylated haemoglobin increased [Unknown]
  - Pain [Unknown]
  - Oedema peripheral [Unknown]
  - Mobility decreased [Unknown]
